FAERS Safety Report 14889421 (Version 2)
Quarter: 2018Q2

REPORT INFORMATION
  Report Type: Spontaneous
  Country: US (occurrence: US)
  Receive Date: 20180514
  Receipt Date: 20180531
  Transmission Date: 20180711
  Serious: No
  Sender: FDA-Public Use
  Company Number: US-BEH-2018090556

PATIENT
  Age: 24 Year
  Sex: Male
  Weight: 158.73 kg

DRUGS (4)
  1. FIRAZYR [Concomitant]
     Active Substance: ICATIBANT ACETATE
     Route: 065
  2. HAEGARDA [Suspect]
     Active Substance: HUMAN C1-ESTERASE INHIBITOR
     Indication: PROPHYLAXIS
     Dosage: 9000 IU, EVERY 3-4 DAYS
     Route: 058
     Dates: start: 20180223
  3. HAEGARDA [Suspect]
     Active Substance: HUMAN C1-ESTERASE INHIBITOR
     Indication: HEREDITARY ANGIOEDEMA
     Dosage: UNK
     Route: 058
  4. DANAZOL. [Concomitant]
     Active Substance: DANAZOL
     Route: 065

REACTIONS (1)
  - Paronychia [Unknown]

NARRATIVE: CASE EVENT DATE: 201804
